FAERS Safety Report 8271253-7 (Version None)
Quarter: 2012Q2

REPORT INFORMATION
  Report Type: 
  Country: None (occurrence: None)
  Receive Date: 20120410
  Receipt Date: 20120402
  Transmission Date: 20120825
  Serious: Yes (Other)
  Sender: FDA-Public Use
  Company Number: US-PFIZER INC-2012047589

PATIENT
  Sex: Male
  Weight: 56.7 kg

DRUGS (3)
  1. OXYCODONE [Concomitant]
     Indication: NERVE INJURY
     Dosage: UNK
  2. NEURONTIN [Suspect]
     Dosage: 300 MG
  3. GABAPENTIN [Suspect]
     Indication: NERVE INJURY
     Dosage: 300 MG, 8X/DAY
     Route: 048
     Dates: start: 20050101

REACTIONS (6)
  - BURNING SENSATION [None]
  - NEUROPATHY PERIPHERAL [None]
  - PARAESTHESIA [None]
  - SPEECH DISORDER [None]
  - INCONTINENCE [None]
  - NERVE INJURY [None]
